FAERS Safety Report 19854838 (Version 1)
Quarter: 2021Q3

REPORT INFORMATION
  Report Type: Spontaneous
  Country: US (occurrence: US)
  Receive Date: 20210920
  Receipt Date: 20210920
  Transmission Date: 20211014
  Serious: No
  Sender: FDA-Public Use
  Company Number: US-AUROBINDO-AUR-APL-2020-061348

PATIENT
  Age: 68 Year
  Sex: Female
  Weight: 58.05 kg

DRUGS (3)
  1. ALPRAZOLAM TABLETS USP 0.5MG [Suspect]
     Active Substance: ALPRAZOLAM
     Indication: ANXIETY DISORDER
     Dosage: 03 DOSAGE FORM, DAILY
     Route: 065
  2. ALPRAZOLAM TABLETS USP 0.5MG [Suspect]
     Active Substance: ALPRAZOLAM
     Indication: PANIC DISORDER
     Dosage: TOOK ONLY HALF OF THE 0.5
     Route: 065
  3. ALPRAZOLAM TABLETS USP 0.5MG [Suspect]
     Active Substance: ALPRAZOLAM
     Indication: PANIC ATTACK
     Dosage: SHE JUST TOOK 02 DOSES
     Route: 065

REACTIONS (16)
  - Ear discomfort [Recovered/Resolved]
  - Reaction to excipient [Recovered/Resolved]
  - Self-medication [Unknown]
  - Extra dose administered [Unknown]
  - Vomiting [Recovered/Resolved]
  - Product physical issue [Unknown]
  - Sedation [Recovered/Resolved]
  - Drug ineffective [Unknown]
  - Diarrhoea [Recovered/Resolved]
  - Pruritus [Recovered/Resolved]
  - Feeding disorder [Recovered/Resolved]
  - Anxiety [Recovered/Resolved]
  - Feeling abnormal [Recovered/Resolved]
  - Weight decreased [Recovered/Resolved]
  - Language disorder [Recovered/Resolved]
  - Incorrect dose administered [Unknown]

NARRATIVE: CASE EVENT DATE: 20201210
